FAERS Safety Report 7679626-8 (Version None)
Quarter: 2011Q3

REPORT INFORMATION
  Report Type: 
  Country: None (occurrence: None)
  Receive Date: 20110812
  Receipt Date: 20110803
  Transmission Date: 20111222
  Serious: Yes (Other)
  Sender: FDA-Public Use
  Company Number: US-AMGEN-USASP2011035623

PATIENT
  Age: 67 Year
  Sex: Female

DRUGS (2)
  1. ENBREL [Suspect]
     Dosage: 50 MG, QWK
     Dates: start: 20000101
  2. ENBREL [Suspect]
     Indication: RHEUMATOID ARTHRITIS
     Dosage: 25 MG, 2 TIMES/WK
     Dates: start: 20000101

REACTIONS (4)
  - BREAKTHROUGH PAIN [None]
  - DIPLOPIA [None]
  - THERAPEUTIC RESPONSE DECREASED [None]
  - CATARACT [None]
